FAERS Safety Report 6523841-3 (Version None)
Quarter: 2009Q4

REPORT INFORMATION
  Report Type: 
  Country: None (occurrence: None)
  Receive Date: 20091230
  Receipt Date: 20091230
  Transmission Date: 20100525
  Serious: No
  Sender: FDA-Public Use
  Company Number: None

PATIENT
  Age: 57 Year
  Sex: Female
  Weight: 106.5953 kg

DRUGS (1)
  1. TYLENOL ARTHRITIS PAIN CAPLETS 650 MG EACH MCNEIL CONSUMER HEALTHCARE [Suspect]
     Indication: ARTHRITIS
     Dosage: 2 CAPLETS 2 X'S A DAY PO
     Route: 048
     Dates: start: 20091221, end: 20091228

REACTIONS (3)
  - ABDOMINAL PAIN UPPER [None]
  - DIARRHOEA [None]
  - PRODUCT QUALITY ISSUE [None]
